FAERS Safety Report 10491362 (Version 1)
Quarter: 2014Q4

REPORT INFORMATION
  Report Type: Spontaneous
  Country: US (occurrence: US)
  Receive Date: 20141002
  Receipt Date: 20141002
  Transmission Date: 20150528
  Serious: No
  Sender: FDA-Public Use
  Company Number: US-GLAXOSMITHKLINE-A1051868A

PATIENT
  Age: 81 Year
  Sex: Male

DRUGS (8)
  1. PREDNISONE. [Concomitant]
     Active Substance: PREDNISONE
  2. MORPHINE [Concomitant]
     Active Substance: MORPHINE
  3. GABAPENTIN. [Concomitant]
     Active Substance: GABAPENTIN
  4. BLOOD PRESSURE MEDICATION [Concomitant]
     Active Substance: UNSPECIFIED INGREDIENT
  5. FOLIC ACID. [Concomitant]
     Active Substance: FOLIC ACID
  6. VITAMIN B12 [Concomitant]
     Active Substance: CYANOCOBALAMIN
  7. ADVAIR HFA [Suspect]
     Active Substance: FLUTICASONE PROPIONATE\SALMETEROL XINAFOATE
     Indication: ASTHMA
     Route: 055
     Dates: start: 2008
  8. MELOXICAM. [Concomitant]
     Active Substance: MELOXICAM

REACTIONS (2)
  - Wheezing [Not Recovered/Not Resolved]
  - Product quality issue [Not Recovered/Not Resolved]

NARRATIVE: CASE EVENT DATE: 20131129
